FAERS Safety Report 13301416 (Version 10)
Quarter: 2022Q2

REPORT INFORMATION
  Report Type: Spontaneous
  Country: CA (occurrence: None)
  Receive Date: 20170307
  Receipt Date: 20220510
  Transmission Date: 20220721
  Serious: Yes (Disabling, Other)
  Sender: FDA-Public Use
  Company Number: CA-ORION CORPORATION ORION PHARMA-TREX2016-0946

PATIENT
  Age: 45 Year
  Sex: Female
  Weight: 115 kg

DRUGS (24)
  1. METHOTREXATE [Suspect]
     Active Substance: METHOTREXATE
     Indication: Rheumatoid arthritis
     Route: 065
  2. METHOTREXATE [Suspect]
     Active Substance: METHOTREXATE
     Route: 065
  3. METHOTREXATE [Suspect]
     Active Substance: METHOTREXATE
     Route: 065
  4. ENBREL [Suspect]
     Active Substance: ETANERCEPT
     Indication: Rheumatoid arthritis
     Route: 065
     Dates: start: 20080421
  5. ENBREL [Suspect]
     Active Substance: ETANERCEPT
     Route: 065
  6. ENBREL [Suspect]
     Active Substance: ETANERCEPT
     Route: 065
  7. SULFASALAZINE [Suspect]
     Active Substance: SULFASALAZINE
     Indication: Rheumatoid arthritis
     Route: 065
  8. HUMIRA [Suspect]
     Active Substance: ADALIMUMAB
     Indication: Rheumatoid arthritis
     Route: 058
  9. HUMIRA [Suspect]
     Active Substance: ADALIMUMAB
     Route: 058
  10. RITUXAN [Suspect]
     Active Substance: RITUXIMAB
     Indication: Rheumatoid arthritis
     Route: 042
  11. ORENCIA [Suspect]
     Active Substance: ABATACEPT
     Indication: Rheumatoid arthritis
     Route: 065
     Dates: end: 2014
  12. RITUXIMAB [Suspect]
     Active Substance: RITUXIMAB
     Indication: Rheumatoid arthritis
     Route: 042
  13. PLAQUENIL [Concomitant]
     Active Substance: HYDROXYCHLOROQUINE SULFATE
     Indication: Rheumatoid arthritis
     Route: 065
  14. TYLENOL WITH CODEINE [Concomitant]
     Active Substance: ACETAMINOPHEN\CODEINE PHOSPHATE
     Dosage: AS NECESSARY
     Route: 065
  15. MEPROBAMATE [Concomitant]
     Active Substance: MEPROBAMATE
     Route: 065
  16. HYDROXYCHLOROQUINE [Concomitant]
     Active Substance: HYDROXYCHLOROQUINE
     Indication: Rheumatoid arthritis
     Route: 065
  17. ACETAMINOPHEN [Concomitant]
     Active Substance: ACETAMINOPHEN
     Route: 065
  18. CODEINE [Concomitant]
     Active Substance: CODEINE
     Route: 065
  19. ACETAMINOPHEN\CODEINE PHOSPHATE [Concomitant]
     Active Substance: ACETAMINOPHEN\CODEINE PHOSPHATE
     Route: 065
  20. ACETAMINOPHEN\CODEINE PHOSPHATE [Concomitant]
     Active Substance: ACETAMINOPHEN\CODEINE PHOSPHATE
     Dosage: AS NECESSARY
     Route: 065
  21. CAFFEINE [Concomitant]
     Active Substance: CAFFEINE
     Route: 065
  22. HYDROXYCHLOROQUINE DIPHOSPHATE [Concomitant]
     Active Substance: HYDROXYCHLOROQUINE DIPHOSPHATE
     Indication: Rheumatoid arthritis
     Route: 065
  23. HYDROXYCHLOROQUINE SULFATE [Concomitant]
     Active Substance: HYDROXYCHLOROQUINE SULFATE
     Indication: Rheumatoid arthritis
     Route: 065
  24. INFLIXIMAB [Concomitant]
     Active Substance: INFLIXIMAB
     Route: 065

REACTIONS (11)
  - Drug ineffective [Unknown]
  - Off label use [Not Recovered/Not Resolved]
  - Contraindicated product administered [Not Recovered/Not Resolved]
  - Precancerous cells present [Not Recovered/Not Resolved]
  - Breast cancer female [Unknown]
  - Nasopharyngitis [Not Recovered/Not Resolved]
  - Breast mass [Not Recovered/Not Resolved]
  - Hypertension [Not Recovered/Not Resolved]
  - Liver function test increased [Not Recovered/Not Resolved]
  - Dermatitis allergic [Not Recovered/Not Resolved]
  - Therapeutic product effect decreased [Unknown]

NARRATIVE: CASE EVENT DATE: 20080617
